FAERS Safety Report 4355426-1 (Version None)
Quarter: 2004Q2

REPORT INFORMATION
  Report Type: 
  Country: None (occurrence: None)
  Receive Date: 20040505
  Receipt Date: 20040422
  Transmission Date: 20050107
  Serious: Yes (Hospitalization)
  Sender: FDA-Public Use
  Company Number: 2004210880JP

PATIENT
  Age: 25 Year
  Sex: Male

DRUGS (3)
  1. EPIRUBICIN [Suspect]
     Dosage: 500 ML, UNK, IV
     Route: 042
  2. VOLTAREN [Suspect]
     Dates: start: 20030315, end: 20030602
  3. FAMOTIDINE [Suspect]

REACTIONS (1)
  - RHABDOMYOLYSIS [None]
